FAERS Safety Report 6390404-2 (Version None)
Quarter: 2009Q4

REPORT INFORMATION
  Report Type: 
  Country: None (occurrence: None)
  Receive Date: 20091006
  Receipt Date: 20091002
  Transmission Date: 20100525
  Serious: Yes (Hospitalization)
  Sender: FDA-Public Use
  Company Number: US-MERCK-0909USA02021

PATIENT
  Age: 80 Year
  Sex: Male

DRUGS (11)
  1. INVANZ [Suspect]
     Indication: INFECTION
     Route: 065
     Dates: start: 20090820
  2. INVANZ [Suspect]
     Route: 065
     Dates: start: 20090830
  3. PRINZIDE [Concomitant]
     Route: 048
  4. MIRALAX [Concomitant]
     Route: 065
  5. ALLOPURINOL [Concomitant]
     Route: 065
  6. NEXIUM [Concomitant]
     Route: 065
  7. CARDIZEM [Concomitant]
     Route: 065
  8. TRICOR [Concomitant]
     Route: 065
  9. COUMADIN [Concomitant]
     Route: 065
  10. ASPIRIN [Concomitant]
     Route: 065
  11. TYLENOL (CAPLET) [Concomitant]
     Indication: ANALGESIC THERAPY
     Route: 065

REACTIONS (7)
  - ASTHENIA [None]
  - BLOOD CALCIUM INCREASED [None]
  - CONFUSIONAL STATE [None]
  - DYSARTHRIA [None]
  - DYSSTASIA [None]
  - GAIT DISTURBANCE [None]
  - HALLUCINATION [None]
